FAERS Safety Report 7772785-8 (Version None)
Quarter: 2011Q3

REPORT INFORMATION
  Report Type: 
  Country: None (occurrence: None)
  Receive Date: 20110922
  Receipt Date: 20100217
  Transmission Date: 20111222
  Serious: No
  Sender: FDA-Public Use
  Company Number: US-ASTRAZENECA-2008UW27600

PATIENT
  Age: 29 Year
  Sex: Female
  Weight: 95.3 kg

DRUGS (14)
  1. SEROQUEL [Suspect]
     Dosage: 200 TO 300 MG
     Route: 048
     Dates: start: 20020429
  2. CYMBALTA [Concomitant]
     Dates: start: 20090101
  3. PAXIL [Concomitant]
     Dates: start: 20030101
  4. AMBIEN [Concomitant]
     Dates: start: 20080101, end: 20090101
  5. SEROQUEL [Suspect]
     Dosage: 200 TO 300 MG
     Route: 048
     Dates: start: 20020429
  6. SEROQUEL [Suspect]
     Indication: DEPRESSION
     Dosage: 25 MG, 50 MG,100 MG, 200 MG, 600 MG AND 800 MG
     Route: 048
     Dates: start: 20011106, end: 20030401
  7. PROZAC [Concomitant]
     Dosage: 20 TO 40 MG
     Dates: start: 20020429
  8. ZOLOFT [Concomitant]
     Dates: start: 20000101
  9. GLIPIZIDE [Concomitant]
     Route: 048
     Dates: start: 20020429
  10. PROZAC [Concomitant]
     Dates: start: 20030101
  11. WELLBUTRIN [Concomitant]
     Dates: start: 20050101
  12. GEMFIBROZIL [Concomitant]
     Route: 048
     Dates: start: 20050909
  13. SEROQUEL [Suspect]
     Indication: BIPOLAR DISORDER
     Dosage: 25 MG, 50 MG,100 MG, 200 MG, 600 MG AND 800 MG
     Route: 048
     Dates: start: 20011106, end: 20030401
  14. TRAZODONE HYDROCHLORIDE [Concomitant]
     Dates: start: 20000101

REACTIONS (4)
  - TYPE 2 DIABETES MELLITUS [None]
  - BREAST MASS [None]
  - HYPERLIPIDAEMIA [None]
  - BLOOD CHOLESTEROL INCREASED [None]
